FAERS Safety Report 8184609-8 (Version None)
Quarter: 2012Q1

REPORT INFORMATION
  Report Type: 
  Country: None (occurrence: None)
  Receive Date: 20120301
  Receipt Date: 20120214
  Transmission Date: 20120608
  Serious: Yes (Hospitalization)
  Sender: FDA-Public Use
  Company Number: JPI-P-019697

PATIENT
  Age: 39 Year
  Sex: Female

DRUGS (4)
  1. CLONAZEPAM [Concomitant]
  2. AMPHETAMINE, DEXTROAMPHETAMINE MIXED SALTS [Concomitant]
  3. XYREM [Suspect]
     Indication: CATAPLEXY
     Dosage: 4.5 GM (2.25 GM,2 IN 1 D),ORAL, 6 GM (3 GM,2 IN 1 D),ORAL
     Route: 048
     Dates: start: 20111222
  4. XYREM [Suspect]
     Indication: CATAPLEXY
     Dosage: 4.5 GM (2.25 GM,2 IN 1 D),ORAL, 6 GM (3 GM,2 IN 1 D),ORAL
     Route: 048
     Dates: start: 20120110

REACTIONS (4)
  - SOMNOLENCE [None]
  - NAUSEA [None]
  - INSOMNIA [None]
  - TERMINAL INSOMNIA [None]
